FAERS Safety Report 4579683-1 (Version None)
Quarter: 2005Q1

REPORT INFORMATION
  Report Type: 
  Country: None (occurrence: None)
  Receive Date: 20050210
  Receipt Date: 20050131
  Transmission Date: 20050727
  Serious: Yes (Death)
  Sender: FDA-Public Use
  Company Number: US-2004-034940

PATIENT
  Age: 34 Year
  Sex: Female
  Weight: 68.9 kg

DRUGS (3)
  1. BETASERON [Suspect]
     Indication: MULTIPLE SCLEROSIS
     Dosage: 2 MIU, EVERY 2D, SUBCUTANEOUS
     Route: 058
     Dates: start: 20041106
  2. NECON [Concomitant]
  3. BACLOFEN [Concomitant]

REACTIONS (1)
  - PULMONARY EMBOLISM [None]
